FAERS Safety Report 9292841 (Version 1)
Quarter: 2013Q2

REPORT INFORMATION
  Report Type: Spontaneous
  Country: US (occurrence: None)
  Receive Date: 20130515
  Receipt Date: 20130515
  Transmission Date: 20140414
  Serious: Yes (Other)
  Sender: FDA-Public Use
  Company Number: None

PATIENT
  Age: 59 Year
  Sex: Female
  Weight: 62.6 kg

DRUGS (1)
  1. CLINDAMYCIN HCL [Suspect]
     Indication: SINUS OPERATION
     Dosage: EVERY 8 HOURS/7 DAYS
     Dates: start: 20130502

REACTIONS (5)
  - Swollen tongue [None]
  - Gastric disorder [None]
  - Faeces discoloured [None]
  - Dysphagia [None]
  - Dizziness [None]
